FAERS Safety Report 4325817-3 (Version None)
Quarter: 2004Q1

REPORT INFORMATION
  Report Type: 
  Country: None (occurrence: None)
  Receive Date: 20040329
  Receipt Date: 20010802
  Transmission Date: 20041129
  Serious: Yes (Hospitalization)
  Sender: FDA-Public Use
  Company Number: PHEH2001US06643

PATIENT
  Age: 65 Year
  Sex: Male
  Weight: 71 kg

DRUGS (2)
  1. RAD001 OR AZATHIOPRINE [Suspect]
     Indication: HEART TRANSPLANT
     Dosage: CODE NOT BROKEN
     Route: 048
     Dates: start: 19990714, end: 20010710
  2. SANDIMMUNE [Suspect]
     Indication: HEART TRANSPLANT
     Dosage: 100 MG, BID
     Dates: start: 20010710

REACTIONS (11)
  - CONDITION AGGRAVATED [None]
  - DISEASE PROGRESSION [None]
  - DYSPNOEA [None]
  - HAEMODYNAMIC INSTABILITY [None]
  - HYPERTENSION [None]
  - NEPHROPATHY TOXIC [None]
  - NEPHROSCLEROSIS [None]
  - OEDEMA [None]
  - RENAL FAILURE [None]
  - RENAL FAILURE ACUTE [None]
  - RENAL FAILURE CHRONIC [None]
